FAERS Safety Report 10341849 (Version 1)
Quarter: 2014Q3

REPORT INFORMATION
  Report Type: Spontaneous
  Country: IT (occurrence: None)
  Receive Date: 20140722
  Receipt Date: 20140722
  Transmission Date: 20150326
  Serious: Yes (Hospitalization, Other)
  Sender: FDA-Public Use
  Company Number: ADR-2014-01272

PATIENT
  Age: 10 Year
  Sex: Male

DRUGS (21)
  1. TRIHEXYPHENIDYL [Suspect]
     Active Substance: TRIHEXYPHENIDYL
  2. TETRABENAZINE [Suspect]
     Active Substance: TETRABENAZINE
  3. DIAZEPAM. [Suspect]
     Active Substance: DIAZEPAM
  4. CLORPROMAZINE [Suspect]
     Active Substance: CHLORPROMAZINE
  5. MORPHINE [Suspect]
     Active Substance: MORPHINE
  6. PHENOBARBITAL. [Suspect]
     Active Substance: PHENOBARBITAL
  7. TRAZODONE [Suspect]
     Active Substance: TRAZODONE HYDROCHLORIDE
  8. TIZANIDINE [Suspect]
     Active Substance: TIZANIDINE
  9. PROPOFOL. [Suspect]
     Active Substance: PROPOFOL
  10. IG PRODUCT [Suspect]
     Active Substance: HUMAN IMMUNOGLOBULIN G
  11. PROMAZINE [Suspect]
     Active Substance: PROMAZINE
  12. BACLOFEN INTRATHECAL [Suspect]
     Active Substance: BACLOFEN
     Indication: DYSTONIA
  13. MIDAZOLAM [Suspect]
     Active Substance: MIDAZOLAM\MIDAZOLAM HYDROCHLORIDE
  14. DEXAMETHASONE. [Suspect]
     Active Substance: DEXAMETHASONE
  15. THIOPENTONE [Suspect]
     Active Substance: THIOPENTAL SODIUM
  16. LORAZEPAM. [Suspect]
     Active Substance: LORAZEPAM
  17. CLONAZEPAM. [Suspect]
     Active Substance: CLONAZEPAM
  18. PIMOZIDE [Suspect]
     Active Substance: PIMOZIDE
  19. REMIFENTANIL [Suspect]
     Active Substance: REMIFENTANIL
  20. BACLOFEN ORAL [Suspect]
     Active Substance: BACLOFEN
  21. KETAMINE [Suspect]
     Active Substance: KETAMINE

REACTIONS (11)
  - Device related infection [None]
  - Drug ineffective [None]
  - Respiratory tract infection [None]
  - Pain [None]
  - Sepsis [None]
  - H1N1 influenza [None]
  - Dystonia [None]
  - Gastrostomy [None]
  - Oxygen saturation decreased [None]
  - Deep vein thrombosis [None]
  - Disease complication [None]
